FAERS Safety Report 9474973 (Version 1)
Quarter: 2013Q3

REPORT INFORMATION
  Report Type: Spontaneous
  Country: US (occurrence: None)
  Receive Date: 20130822
  Receipt Date: 20130822
  Transmission Date: 20140515
  Serious: Yes (Hospitalization, Disabling)
  Sender: FDA-Public Use
  Company Number: None

PATIENT
  Age: 33 Year
  Sex: Female

DRUGS (1)
  1. CIPROXIN [Suspect]
     Indication: EAR INFECTION
     Route: 048
     Dates: start: 20130120, end: 20130121

REACTIONS (7)
  - Burning sensation [None]
  - Pain in extremity [None]
  - Tenosynovitis [None]
  - Torticollis [None]
  - Muscular weakness [None]
  - Muscle contractions involuntary [None]
  - Neuropathy peripheral [None]
